FAERS Safety Report 7388339-1 (Version None)
Quarter: 2011Q2

REPORT INFORMATION
  Report Type: 
  Country: None (occurrence: None)
  Receive Date: 20110401
  Receipt Date: 20110215
  Transmission Date: 20111010
  Serious: Yes (Life-Threatening)
  Sender: FDA-Public Use
  Company Number: FR-CELGENEUS-056-21880-11021163

PATIENT
  Age: 73 Year
  Sex: Male
  Weight: 87 kg

DRUGS (12)
  1. KARDEGIC [Concomitant]
     Route: 048
  2. SIMVASTATIN [Concomitant]
     Route: 065
  3. BACTRIM [Concomitant]
     Route: 065
  4. LEDERFOLINE [Concomitant]
     Route: 065
  5. REVLIMID [Suspect]
     Indication: MULTIPLE MYELOMA
     Dosage: 25 MILLIGRAM
     Route: 048
     Dates: start: 20091229, end: 20100607
  6. VELCADE [Concomitant]
     Indication: MULTIPLE MYELOMA
     Route: 051
     Dates: start: 20100617
  7. RAMIPRIL [Concomitant]
     Route: 065
  8. AMLODIPINE [Concomitant]
     Route: 065
  9. DEXAMETHASONE [Suspect]
     Indication: MULTIPLE MYELOMA
     Route: 048
     Dates: start: 20091229, end: 20100119
  10. VALACICLOVIR [Concomitant]
     Route: 065
  11. INSULIN [Concomitant]
     Route: 065
  12. OMEPRAZOLE [Concomitant]
     Route: 065

REACTIONS (1)
  - RECTAL CANCER STAGE III [None]
